FAERS Safety Report 5533341-5 (Version None)
Quarter: 2007Q4

REPORT INFORMATION
  Report Type: 
  Country: None (occurrence: None)
  Receive Date: 20071204
  Receipt Date: 20071122
  Transmission Date: 20080405
  Serious: Yes (Hospitalization)
  Sender: FDA-Public Use
  Company Number: DE-PURDUE-DEU_2007_0003507

PATIENT
  Age: 46 Year
  Sex: Male

DRUGS (3)
  1. OXYCODONE HCL / NALOXON HCL CR TAB [Suspect]
     Indication: BACK PAIN
     Route: 048
     Dates: start: 20070522
  2. AMITRIPTLINE HCL [Concomitant]
  3. METAMIZOLE [Concomitant]

REACTIONS (3)
  - CONTUSION [None]
  - FALL [None]
  - PERIPHERAL NERVE LESION [None]
